FAERS Safety Report 8694029 (Version 2)
Quarter: 2012Q4

REPORT INFORMATION
  Report Type: 
  Country: BR (occurrence: BR)
  Receive Date: 20120731
  Receipt Date: 20120830
  Transmission Date: 20130627
  Serious: Yes (Other)
  Sender: FDA-Public Use
  Company Number: PHHY2012BR065241

PATIENT
  Age: 77 None
  Sex: Female
  Weight: 77 kg

DRUGS (1)
  1. FORASEQ [Suspect]
     Indication: BRONCHITIS
     Dosage: 12/400 mcg  once a daily

REACTIONS (4)
  - Emphysema [Unknown]
  - Dyspnoea exertional [Unknown]
  - Chest pain [Unknown]
  - Diaphragmatic disorder [Unknown]
